FAERS Safety Report 13002343 (Version 1)
Quarter: 2016Q4

REPORT INFORMATION
  Report Type: Spontaneous
  Country: AT (occurrence: AT)
  Receive Date: 20161206
  Receipt Date: 20161206
  Transmission Date: 20170207
  Serious: Yes (Hospitalization)
  Sender: FDA-Public Use
  Company Number: AT-CITRON PHARMA LLC-B16-0139-AE

PATIENT
  Age: 41 Year
  Sex: Female

DRUGS (10)
  1. FLUDROCORTISONE ACETATE. [Suspect]
     Active Substance: FLUDROCORTISONE ACETATE
     Dosage: 0.05 MG, QD
  2. PARACETAMOL [Concomitant]
     Active Substance: ACETAMINOPHEN
     Indication: PAIN
     Dosage: UNK
     Route: 065
  3. FLUDROCORTISONE ACETATE. [Suspect]
     Active Substance: FLUDROCORTISONE ACETATE
     Indication: POLYGLANDULAR AUTOIMMUNE SYNDROME TYPE II
     Dosage: 0.3 MG, QD
     Route: 065
     Dates: start: 20141121
  4. CLAVULANATE POTASSIUM [Concomitant]
     Active Substance: CLAVULANATE POTASSIUM
     Indication: PRODUCT USED FOR UNKNOWN INDICATION
     Dosage: UNK
     Route: 065
  5. HYDROCORTONE [Concomitant]
     Active Substance: HYDROCORTISONE
     Indication: POLYGLANDULAR AUTOIMMUNE SYNDROME TYPE II
     Dosage: 20 MG, QD
     Route: 065
     Dates: start: 20141121
  6. VITAMIN E [Concomitant]
     Active Substance: .ALPHA.-TOCOPHEROL
     Indication: PRODUCT USED FOR UNKNOWN INDICATION
     Dosage: UNK
     Route: 065
  7. LEVOTHYROXINE. [Concomitant]
     Active Substance: LEVOTHYROXINE
     Indication: AUTOIMMUNE THYROIDITIS
     Dosage: UNK
     Route: 065
     Dates: start: 2011
  8. LEVOTHYROXINE. [Concomitant]
     Active Substance: LEVOTHYROXINE
     Indication: POLYGLANDULAR AUTOIMMUNE SYNDROME TYPE II
     Dosage: 50 ?G/DAY
     Route: 065
  9. VITAMIN A [Concomitant]
     Active Substance: VITAMIN A
     Indication: PRODUCT USED FOR UNKNOWN INDICATION
     Dosage: UNK
     Route: 065
  10. AMOXICILLIN. [Concomitant]
     Active Substance: AMOXICILLIN
     Indication: PRODUCT USED FOR UNKNOWN INDICATION
     Dosage: UNK
     Route: 065

REACTIONS (19)
  - Orthopnoea [Unknown]
  - Sinus tachycardia [Unknown]
  - Tachypnoea [Unknown]
  - Troponin T increased [Unknown]
  - Tachycardia [Unknown]
  - Left ventricular dysfunction [Recovered/Resolved]
  - Ejection fraction decreased [Unknown]
  - Weight increased [Unknown]
  - Crepitations [Unknown]
  - Capillary disorder [Recovered/Resolved]
  - Electrocardiogram QT prolonged [Recovered/Resolved]
  - Hyperaemia [Unknown]
  - Electrocardiogram ST segment abnormal [Recovered/Resolved]
  - Oedema peripheral [Unknown]
  - Akinesia [Unknown]
  - Electrocardiogram T wave inversion [Recovered/Resolved]
  - Cardiac failure chronic [Recovered/Resolved]
  - Blood pressure decreased [Unknown]
  - Overdose [Unknown]
